FAERS Safety Report 5784319-8 (Version None)
Quarter: 2008Q2

REPORT INFORMATION
  Report Type: 
  Country: None (occurrence: None)
  Receive Date: 20080624
  Receipt Date: 20070522
  Transmission Date: 20081010
  Serious: No
  Sender: FDA-Public Use
  Company Number: US-ASTRAZENECA-2007UW12742

PATIENT
  Age: 18 Month
  Sex: Male

DRUGS (3)
  1. PULMICORT RESPULES [Suspect]
     Route: 055
     Dates: start: 20070521
  2. PULMICORT RESPULES [Suspect]
     Route: 055
  3. XOPENEX [Suspect]

REACTIONS (3)
  - ERYTHEMA [None]
  - MEDICATION ERROR [None]
  - RESPIRATORY DISTRESS [None]
